FAERS Safety Report 5940171-9 (Version None)
Quarter: 2008Q4

REPORT INFORMATION
  Report Type: 
  Country: None (occurrence: None)
  Receive Date: 20081104
  Receipt Date: 20070410
  Transmission Date: 20090506
  Serious: Yes (Hospitalization, Other)
  Sender: FDA-Public Use
  Company Number: PHEH2007US05188

PATIENT
  Age: 65 Year
  Sex: Female

DRUGS (4)
  1. DYNACIRC [Suspect]
     Indication: HYPERTENSION
     Dates: end: 20070111
  2. HYDROCHLOROTHIAZIDE [Suspect]
     Indication: HYPERTENSION
     Dosage: 25 MG, UNK
  3. PEGINTERFERON ALFA-2B [Suspect]
     Indication: HEPATITIS C
     Dosage: 0.15 MG, QW
     Dates: start: 20061027, end: 20070111
  4. RIBAVIRIN [Suspect]
     Indication: HEPATITIS C
     Dosage: 1200 MG, QD
     Dates: start: 20061027, end: 20070111

REACTIONS (23)
  - ABASIA [None]
  - ABDOMINAL PAIN UPPER [None]
  - ANAEMIA [None]
  - ANGIOEDEMA [None]
  - ANOSMIA [None]
  - BONE PAIN [None]
  - DECREASED APPETITE [None]
  - DEHYDRATION [None]
  - DIARRHOEA [None]
  - DYSSTASIA [None]
  - HEPATITIS C [None]
  - HYPERSENSITIVITY [None]
  - LIP SWELLING [None]
  - NAUSEA [None]
  - ORAL DISCOMFORT [None]
  - PNEUMONIA [None]
  - RENAL FAILURE [None]
  - SWELLING FACE [None]
  - THINKING ABNORMAL [None]
  - TROPONIN INCREASED [None]
  - VOMITING [None]
  - WEIGHT DECREASED [None]
  - WHITE BLOOD CELL COUNT DECREASED [None]
